FAERS Safety Report 4317725-9 (Version None)
Quarter: 2004Q1

REPORT INFORMATION
  Report Type: 
  Country: None (occurrence: None)
  Receive Date: 20040315
  Receipt Date: 20040308
  Transmission Date: 20041129
  Serious: Yes (Life-Threatening, Hospitalization)
  Sender: FDA-Public Use
  Company Number: US-BRISTOL-MYERS SQUIBB COMPANY-12527446

PATIENT
  Age: 63 Year
  Sex: Male
  Weight: 44 kg

DRUGS (11)
  1. ERBITUX [Suspect]
     Indication: COLON CANCER
     Route: 042
     Dates: start: 20040304, end: 20040304
  2. BENADRYL [Concomitant]
     Indication: PREMEDICATION
  3. OXYCONTIN [Concomitant]
  4. LASIX [Concomitant]
  5. ZOLOFT [Concomitant]
  6. REGLAN [Concomitant]
  7. ATIVAN [Concomitant]
  8. OXYCODONE [Concomitant]
  9. TORADOL [Concomitant]
  10. MISTLETOE [Concomitant]
     Route: 042
  11. MISTLETOE [Concomitant]
     Route: 058

REACTIONS (8)
  - BLOOD POTASSIUM DECREASED [None]
  - DEPRESSED LEVEL OF CONSCIOUSNESS [None]
  - FLUSHING [None]
  - HYPOTENSION [None]
  - MUSCULAR WEAKNESS [None]
  - NAUSEA [None]
  - RESPIRATORY RATE INCREASED [None]
  - VENTRICULAR TACHYCARDIA [None]
